FAERS Safety Report 7115083-8 (Version None)
Quarter: 2010Q4

REPORT INFORMATION
  Report Type: 
  Country: None (occurrence: None)
  Receive Date: 20101112
  Receipt Date: 20101112
  Transmission Date: 20110411
  Serious: Yes (Other)
  Sender: FDA-Public Use
  Company Number: None

PATIENT
  Age: 48 Year
  Sex: Female
  Weight: 79.3795 kg

DRUGS (1)
  1. EVAMIST [Suspect]
     Indication: HYSTERECTOMY
     Dosage: 2 SPRAYS 1 TIME PER DAY TRANSDERMAL
     Route: 062
     Dates: start: 20100915, end: 20101102

REACTIONS (1)
  - ALOPECIA [None]
